FAERS Safety Report 20872204 (Version 1)
Quarter: 2022Q2

REPORT INFORMATION
  Report Type: Spontaneous
  Country: US (occurrence: US)
  Receive Date: 20220525
  Receipt Date: 20220525
  Transmission Date: 20220721
  Serious: No
  Sender: FDA-Public Use
  Company Number: US-JNJFOC-20220548095

PATIENT
  Sex: Female

DRUGS (2)
  1. IMODIUM [Suspect]
     Active Substance: LOPERAMIDE HYDROCHLORIDE
     Indication: Product used for unknown indication
     Dosage: TAKES 1/2 CAPLET BECAUSE IF SHE TAKES A FULL CAPLET SHE MIGHT GET CONSTIPATED.
     Route: 065
  2. IMODIUM [Suspect]
     Active Substance: LOPERAMIDE HYDROCHLORIDE
     Dosage: TAKES 1/2 CAPLET BECAUSE IF SHE TAKES A FULL CAPLET SHE MIGHT GET CONSTIPATED.
     Route: 048

REACTIONS (2)
  - Constipation [Unknown]
  - Incorrect dose administered [Unknown]
